FAERS Safety Report 17599951 (Version 1)
Quarter: 2020Q1

REPORT INFORMATION
  Report Type: Spontaneous
  Country: NL (occurrence: NL)
  Receive Date: 20200330
  Receipt Date: 20200330
  Transmission Date: 20200409
  Serious: Yes (Other)
  Sender: FDA-Public Use
  Company Number: NL-PFIZER INC-2020129183

PATIENT
  Sex: Female
  Weight: 72 kg

DRUGS (2)
  1. ATACAND [Concomitant]
     Active Substance: CANDESARTAN CILEXETIL
     Dosage: 1 DF, UNK (THIS STRENGTH HAS CHANGED OVER THE YEARS)
  2. RELPAX [Suspect]
     Active Substance: ELETRIPTAN HYDROBROMIDE
     Indication: MIGRAINE
     Dosage: 40 MG, EVERY 3 DAY (ORAL 40 MG, WEEKLY AT LEAST 2 TIMES, 1)
     Route: 048
     Dates: start: 2010

REACTIONS (4)
  - Aphasia [Not Recovered/Not Resolved]
  - Depressed level of consciousness [Not Recovered/Not Resolved]
  - Clumsiness [Not Recovered/Not Resolved]
  - Gait disturbance [Not Recovered/Not Resolved]
